FAERS Safety Report 10170243 (Version 4)
Quarter: 2014Q2

REPORT INFORMATION
  Report Type: Report from Study
  Country: US (occurrence: US)
  Receive Date: 20140513
  Receipt Date: 20140605
  Transmission Date: 20141212
  Serious: Yes (Hospitalization, Other)
  Sender: FDA-Public Use
  Company Number: US-ALEXION PHARMACEUTICALS INC.-A201401791

PATIENT
  Sex: 0

DRUGS (2)
  1. SOLIRIS [Suspect]
     Indication: DISSEMINATED INTRAVASCULAR COAGULATION
     Dosage: 900 MG, QW
     Route: 042
     Dates: start: 20140503
  2. SOLIRIS [Suspect]
     Indication: OFF LABEL USE

REACTIONS (12)
  - Plasmapheresis [Unknown]
  - Fluid retention [Unknown]
  - Blood product transfusion [Unknown]
  - Platelet count decreased [Not Recovered/Not Resolved]
  - Dyspnoea [Unknown]
  - Hypertension [Not Recovered/Not Resolved]
  - Oedema peripheral [Unknown]
  - Oedema peripheral [Unknown]
  - Abdominal distension [Unknown]
  - Joint swelling [Unknown]
  - Abdominal distension [Unknown]
  - Off label use [Unknown]
